FAERS Safety Report 10342657 (Version 1)
Quarter: 2014Q3

REPORT INFORMATION
  Report Type: Spontaneous
  Country: US (occurrence: US)
  Receive Date: 20140725
  Receipt Date: 20140725
  Transmission Date: 20150326
  Serious: No
  Sender: FDA-Public Use
  Company Number: US-PFIZER INC-2014206553

PATIENT
  Age: 76 Year
  Sex: Female
  Weight: 77.1 kg

DRUGS (4)
  1. HYDROCHLOROTHIAZIDE/LOSARTAN [Concomitant]
     Indication: HYPERTENSION
     Dosage: (HYDROCHLOROTHIAZIDE 12.5 MG / LOSARTAN 50 MG), DAILY
  2. METFORMIN [Concomitant]
     Active Substance: METFORMIN HYDROCHLORIDE
     Indication: TYPE 2 DIABETES MELLITUS
     Dosage: 1000 MG, 2X/DAY
  3. PROPYLTHIOURACIL. [Concomitant]
     Active Substance: PROPYLTHIOURACIL
     Indication: THYROID DISORDER
     Dosage: 50 MG, 3X/DAY
  4. CADUET [Suspect]
     Active Substance: AMLODIPINE BESYLATE\ATORVASTATIN CALCIUM
     Indication: CARDIAC DISORDER
     Dosage: (AMLODIPINE BESILATE 10 MG / ATORVASTATIN CALCIUM 10 MG), DAILY

REACTIONS (3)
  - Drug intolerance [Unknown]
  - Dizziness [Recovered/Resolved]
  - Weight decreased [Unknown]
